FAERS Safety Report 6262228-8 (Version None)
Quarter: 2009Q3

REPORT INFORMATION
  Report Type: 
  Country: None (occurrence: None)
  Receive Date: 20090708
  Receipt Date: 20090708
  Transmission Date: 20100115
  Serious: No
  Sender: FDA-Public Use
  Company Number: None

PATIENT
  Sex: Female
  Weight: 60.782 kg

DRUGS (1)
  1. DILTIAZEM [Suspect]
     Indication: HEART RATE INCREASED
     Dosage: 6-9-6-10 1 DAILY
     Dates: start: 20090610

REACTIONS (4)
  - ASTHENIA [None]
  - CHEST DISCOMFORT [None]
  - HEADACHE [None]
  - NAUSEA [None]
